FAERS Safety Report 12227473 (Version 4)
Quarter: 2016Q2

REPORT INFORMATION
  Report Type: Other
  Country: FR (occurrence: FR)
  Receive Date: 20160331
  Receipt Date: 20160504
  Transmission Date: 20160815
  Serious: Yes (Hospitalization)
  Sender: FDA-Public Use
  Company Number: FR-PFM-FR-2016-1101

PATIENT
  Age: 49 Year
  Sex: Female

DRUGS (15)
  1. FEMARA [Suspect]
     Active Substance: LETROZOLE
     Indication: HORMONE THERAPY
     Dosage: 2.5 MG
     Route: 065
     Dates: start: 20010807, end: 201107
  2. FLUOROURACIL. [Suspect]
     Active Substance: FLUOROURACIL
     Dosage: TOTAL OF 5 CYCLES
     Route: 065
     Dates: start: 20010406, end: 20010807
  3. AFINITOR [Suspect]
     Active Substance: EVEROLIMUS
     Indication: BREAST CANCER METASTATIC
     Dosage: 5 MG, QD (1/DAY)
     Route: 048
     Dates: start: 20150216, end: 20150302
  4. AFINITOR [Suspect]
     Active Substance: EVEROLIMUS
     Dosage: 10 MG, QD (1/DAY)
     Route: 048
     Dates: start: 20150302, end: 20150923
  5. NOVANTRONE [Suspect]
     Active Substance: MITOXANTRONE HYDROCHLORIDE
     Indication: CHEMOTHERAPY
     Dosage: 140 MG, CYCLICAL (1/21), 6 CYCLES, CUMULATIVE DOSE
     Route: 042
     Dates: start: 199603, end: 199607
  6. NOVANTRONE [Suspect]
     Active Substance: MITOXANTRONE HYDROCHLORIDE
     Indication: ADJUVANT THERAPY
  7. FARMORUBICINE [Suspect]
     Active Substance: EPIRUBICIN HYDROCHLORIDE
     Indication: BREAST CANCER METASTATIC
     Dosage: 500 MG,5 CYCLES, CUMULATIVE DOSE,ON DAY 1
     Route: 042
     Dates: start: 200008, end: 200011
  8. TAXOL [Suspect]
     Active Substance: PACLITAXEL
     Indication: BREAST CANCER METASTATIC
     Dosage: TOTAL OF 5 CYCLES
     Route: 065
     Dates: start: 20010406, end: 20010807
  9. NAVELBINE [Suspect]
     Active Substance: VINORELBINE TARTRATE
     Indication: BREAST CANCER METASTATIC
     Dosage: 140 MG/M2, CYCLICAL (1/21), UNK, 5 CYCLES, ON D1 AND D8, CUMULATIVE DOSE
     Route: 042
     Dates: start: 200008, end: 200011
  10. NOVANTRONE [Suspect]
     Active Substance: MITOXANTRONE HYDROCHLORIDE
     Indication: INVASIVE DUCTAL BREAST CARCINOMA
     Dosage: 20 MG
     Route: 042
     Dates: start: 19960227
  11. ENDOXAN [Suspect]
     Active Substance: CYCLOPHOSPHAMIDE
     Indication: INVASIVE DUCTAL BREAST CARCINOMA
     Dosage: 6 CYCLES
     Route: 042
     Dates: start: 199603, end: 199607
  12. AROMASINE [Suspect]
     Active Substance: EXEMESTANE
     Indication: HORMONE THERAPY
     Dosage: UNK
     Route: 065
     Dates: start: 201210
  13. AFINITOR [Suspect]
     Active Substance: EVEROLIMUS
     Dosage: 5 MG, QD (1/DAY)
     Route: 048
     Dates: start: 20151029, end: 20151205
  14. TAXOTERE [Suspect]
     Active Substance: DOCETAXEL
     Indication: BREAST CANCER METASTATIC
     Dosage: TOTAL OF 5 CYCLES
     Route: 042
     Dates: start: 200011, end: 200103
  15. FLUOROURACIL. [Suspect]
     Active Substance: FLUOROURACIL
     Indication: INVASIVE DUCTAL BREAST CARCINOMA
     Dosage: 6 COURSES
     Route: 042
     Dates: start: 199603, end: 199607

REACTIONS (2)
  - Cardiac failure [Not Recovered/Not Resolved]
  - Ejection fraction decreased [Unknown]

NARRATIVE: CASE EVENT DATE: 200011
